FAERS Safety Report 12092513 (Version 2)
Quarter: 2016Q1

REPORT INFORMATION
  Report Type: Spontaneous
  Country: US (occurrence: US)
  Receive Date: 20160219
  Receipt Date: 20160325
  Transmission Date: 20160526
  Serious: Yes (Death, Hospitalization, Other)
  Sender: FDA-Public Use
  Company Number: US-TEVA-636167USA

PATIENT
  Sex: Male

DRUGS (1)
  1. COPAXONE [Suspect]
     Active Substance: GLATIRAMER ACETATE
     Dosage: UNKNOWN FORM OF STRENGTH
     Route: 058
     Dates: start: 201509

REACTIONS (15)
  - Seizure [Unknown]
  - Fall [Unknown]
  - Progressive multifocal leukoencephalopathy [Unknown]
  - Confusional state [Unknown]
  - Crying [Unknown]
  - Headache [Unknown]
  - Memory impairment [Unknown]
  - Balance disorder [Unknown]
  - Motor dysfunction [Unknown]
  - Product use issue [Unknown]
  - Repetitive speech [Unknown]
  - Dysarthria [Unknown]
  - Death [Fatal]
  - Abnormal behaviour [Unknown]
  - Diplopia [Unknown]
